FAERS Safety Report 7112343-1 (Version None)
Quarter: 2010Q4

REPORT INFORMATION
  Report Type: 
  Country: None (occurrence: None)
  Receive Date: 20101119
  Receipt Date: 20100809
  Transmission Date: 20110411
  Serious: No
  Sender: FDA-Public Use
  Company Number: A0874628A

PATIENT
  Age: 67 Year
  Sex: Male

DRUGS (5)
  1. AVODART [Suspect]
     Dosage: .5MG AT NIGHT
     Route: 048
     Dates: start: 20100805
  2. LISINOPRIL [Concomitant]
  3. PRAVASTATIN [Concomitant]
  4. ACTOS [Concomitant]
  5. JANUMET [Concomitant]

REACTIONS (2)
  - AGITATION [None]
  - NERVOUSNESS [None]
